FAERS Safety Report 7325724-8 (Version None)
Quarter: 2011Q1

REPORT INFORMATION
  Report Type: 
  Country: None (occurrence: None)
  Receive Date: 20110218
  Receipt Date: 20110214
  Transmission Date: 20110831
  Serious: Yes (Death)
  Sender: FDA-Public Use
  Company Number: 2011SP006719

PATIENT
  Age: 66 Year
  Sex: Male

DRUGS (1)
  1. ONCOTICE [Suspect]

REACTIONS (1)
  - BOVINE TUBERCULOSIS [None]
